FAERS Safety Report 23885078 (Version 3)
Quarter: 2024Q3

REPORT INFORMATION
  Report Type: Spontaneous
  Country: US (occurrence: US)
  Receive Date: 20240522
  Receipt Date: 20240828
  Transmission Date: 20241016
  Serious: No
  Sender: NOVARTIS
  Company Number: US-002147023-NVSC2024US102702

PATIENT
  Sex: Male

DRUGS (1)
  1. COSENTYX [Suspect]
     Active Substance: SECUKINUMAB
     Indication: Product used for unknown indication
     Dosage: 300 MG (1XWEEKLY) (300 MG/2 ML)
     Route: 065
     Dates: start: 20240428

REACTIONS (4)
  - Device malfunction [Unknown]
  - Needle issue [Unknown]
  - Accidental exposure to product [Unknown]
  - Product storage error [Unknown]
